FAERS Safety Report 8265631-X (Version None)
Quarter: 2012Q2

REPORT INFORMATION
  Report Type: 
  Country: None (occurrence: None)
  Receive Date: 20120406
  Receipt Date: 20120323
  Transmission Date: 20120825
  Serious: Yes (Other)
  Sender: FDA-Public Use
  Company Number: CHPA2012US005782

PATIENT
  Age: 61 Year
  Sex: Male

DRUGS (3)
  1. INSULIN [Concomitant]
     Dosage: UNK, UNK
  2. NICOTINE [Suspect]
     Indication: SMOKING CESSATION THERAPY
     Dosage: 14 MG, UNK
     Route: 062
     Dates: start: 20120315
  3. NICOTINE [Suspect]
     Dosage: 21 MG, UNK
     Route: 062
     Dates: start: 20120123, end: 20120315

REACTIONS (20)
  - BLOOD GLUCOSE INCREASED [None]
  - BLOOD GLUCOSE FLUCTUATION [None]
  - TREATMENT NONCOMPLIANCE [None]
  - DECREASED APPETITE [None]
  - FEELING ABNORMAL [None]
  - DYSGEUSIA [None]
  - DIARRHOEA [None]
  - INCORRECT DRUG ADMINISTRATION DURATION [None]
  - ERECTILE DYSFUNCTION [None]
  - THERAPEUTIC RESPONSE UNEXPECTED [None]
  - HYPERHIDROSIS [None]
  - DYSPEPSIA [None]
  - SLUGGISHNESS [None]
  - PRURITUS [None]
  - OVERDOSE [None]
  - CONCOMITANT DISEASE AGGRAVATED [None]
  - SOMNOLENCE [None]
  - DIZZINESS [None]
  - INSOMNIA [None]
  - DRUG ADMINISTERED AT INAPPROPRIATE SITE [None]
